FAERS Safety Report 10500699 (Version 1)
Quarter: 2014Q4

REPORT INFORMATION
  Report Type: Spontaneous
  Country: TW (occurrence: TW)
  Receive Date: 20141006
  Receipt Date: 20141006
  Transmission Date: 20150528
  Serious: Yes (Death, Hospitalization)
  Sender: FDA-Public Use
  Company Number: TW-ABBVIE-14K-153-1289352-00

PATIENT
  Age: 80 Year
  Sex: Female
  Weight: 55 kg

DRUGS (1)
  1. HUMIRA [Suspect]
     Active Substance: ADALIMUMAB
     Indication: RHEUMATOID ARTHRITIS
     Route: 058
     Dates: start: 20100115, end: 20140702

REACTIONS (5)
  - Proctalgia [Fatal]
  - Anal abscess [Fatal]
  - Pain [Fatal]
  - Necrotising fasciitis [Fatal]
  - Blood urea increased [Fatal]

NARRATIVE: CASE EVENT DATE: 20140718
